FAERS Safety Report 6134054-1 (Version None)
Quarter: 2009Q1

REPORT INFORMATION
  Report Type: 
  Country: None (occurrence: None)
  Receive Date: 20090326
  Receipt Date: 20090319
  Transmission Date: 20090719
  Serious: No
  Sender: FDA-Public Use
  Company Number: US-B.I. PHARMACEUTICALS,INC./RIDGEFIELD-2009-BP-02315BP

PATIENT
  Sex: Male

DRUGS (6)
  1. FLOMAX [Suspect]
     Indication: PROSTATIC OPERATION
     Dosage: .8MG
     Route: 048
  2. GLYBURIDE [Concomitant]
     Indication: DIABETES MELLITUS
  3. FINASTERIDE [Concomitant]
  4. LISINOPRIL [Concomitant]
     Indication: BLOOD PRESSURE
  5. KEPPRA [Concomitant]
     Indication: CONVULSION
  6. FOLIC ACID [Concomitant]
     Indication: MEDICAL DIET

REACTIONS (5)
  - DRUG INEFFECTIVE [None]
  - INFECTION [None]
  - MIDDLE INSOMNIA [None]
  - UNEVALUABLE EVENT [None]
  - URINARY RETENTION [None]
